FAERS Safety Report 20701723 (Version 3)
Quarter: 2022Q2

REPORT INFORMATION
  Report Type: Spontaneous
  Country: GR (occurrence: None)
  Receive Date: 20220412
  Receipt Date: 20220426
  Transmission Date: 20220721
  Serious: Yes (Other)
  Sender: FDA-Public Use
  Company Number: 2022A140617

PATIENT
  Age: 50 Year
  Sex: Female

DRUGS (1)
  1. FASENRA [Suspect]
     Active Substance: BENRALIZUMAB
     Route: 058

REACTIONS (3)
  - Eyelid oedema [Recovered/Resolved]
  - Visual impairment [Recovered/Resolved]
  - Erythema [Recovered/Resolved]
